FAERS Safety Report 13749812 (Version 1)
Quarter: 2017Q3

REPORT INFORMATION
  Report Type: Spontaneous
  Country: FR (occurrence: FR)
  Receive Date: 20170713
  Receipt Date: 20170713
  Transmission Date: 20171127
  Serious: Yes (Other)
  Sender: FDA-Public Use
  Company Number: FR-009507513-1707FRA001283

PATIENT
  Sex: Male

DRUGS (1)
  1. CHIBRO-PROSCAR [Suspect]
     Active Substance: FINASTERIDE
     Dosage: UNK
     Route: 048
     Dates: start: 2011

REACTIONS (6)
  - Optic neuritis [Unknown]
  - VIth nerve paralysis [Unknown]
  - Diplopia [Unknown]
  - Autoimmune disorder [Unknown]
  - Autoimmune disorder [Unknown]
  - Facial paralysis [Unknown]

NARRATIVE: CASE EVENT DATE: 2013
